FAERS Safety Report 8033983-1 (Version None)
Quarter: 2012Q1

REPORT INFORMATION
  Report Type: 
  Country: None (occurrence: None)
  Receive Date: 20120110
  Receipt Date: 20120106
  Transmission Date: 20120608
  Serious: Yes (Hospitalization)
  Sender: FDA-Public Use
  Company Number: SG-MERCK-1112USA02517

PATIENT
  Age: 57 Year
  Sex: Female
  Weight: 29 kg

DRUGS (11)
  1. EMEND [Suspect]
     Route: 048
     Dates: start: 20111206, end: 20111206
  2. CYCLOPHOSPHAMIDE [Concomitant]
     Indication: CHEMOTHERAPY
     Route: 041
     Dates: start: 20111206, end: 20111206
  3. BENADRYL [Concomitant]
     Indication: PROPHYLACTIC CHEMOTHERAPY
     Route: 041
     Dates: start: 20111206, end: 20111206
  4. HYDROCHLOROTHIAZIDE [Suspect]
     Route: 048
  5. EMEND [Suspect]
     Indication: PROPHYLAXIS OF NAUSEA AND VOMITING
     Route: 048
     Dates: start: 20111206, end: 20111206
  6. KYTRIL [Concomitant]
     Indication: PROPHYLACTIC CHEMOTHERAPY
     Route: 041
     Dates: start: 20111206, end: 20111206
  7. EMEND [Suspect]
     Route: 048
  8. NIFEDIPINE [Concomitant]
     Route: 048
  9. EMEND [Suspect]
     Route: 048
  10. ADRIAMYCIN PFS [Concomitant]
     Indication: CHEMOTHERAPY
     Route: 041
     Dates: start: 20111206, end: 20111206
  11. DEXAMETHASONE [Concomitant]
     Indication: PROPHYLACTIC CHEMOTHERAPY
     Route: 041
     Dates: start: 20111206, end: 20111206

REACTIONS (7)
  - HYPONATRAEMIA [None]
  - BRAIN OEDEMA [None]
  - CONVULSION [None]
  - PETECHIAE [None]
  - CEREBRAL ISCHAEMIA [None]
  - HYPOKALAEMIA [None]
  - PNEUMONIA ASPIRATION [None]
